FAERS Safety Report 8585469-3 (Version None)
Quarter: 2012Q3

REPORT INFORMATION
  Report Type: 
  Country: None (occurrence: None)
  Receive Date: 20120810
  Receipt Date: 20111005
  Transmission Date: 20120928
  Serious: No
  Sender: FDA-Public Use
  Company Number: US-GLAXOSMITHKLINE-A0947545A

PATIENT
  Age: 79 Year
  Sex: Female

DRUGS (2)
  1. DIABETES MEDICATION [Concomitant]
  2. REQUIP XL [Suspect]
     Indication: TREMOR
     Dosage: 2MG TWICE PER DAY
     Route: 048
     Dates: start: 20090101

REACTIONS (1)
  - THERAPEUTIC RESPONSE UNEXPECTED [None]
